FAERS Safety Report 23092650 (Version 1)
Quarter: 2023Q4

REPORT INFORMATION
  Report Type: Spontaneous
  Country: IT (occurrence: IT)
  Receive Date: 20231021
  Receipt Date: 20231021
  Transmission Date: 20240110
  Serious: Yes (Other)
  Sender: FDA-Public Use
  Company Number: None

PATIENT
  Age: 74 Year
  Sex: Male

DRUGS (5)
  1. OXALIPLATIN [Suspect]
     Active Substance: OXALIPLATIN
     Indication: Colon cancer
     Dosage: REACTION AFTER SECOND CYCLE - START OF THERAPY 02/15/2023 - THERAPY EVERY 14 DAYS  , OXALIPLATINO
     Dates: start: 20230301, end: 20230301
  2. FLUOROURACIL [Suspect]
     Active Substance: FLUOROURACIL
     Indication: Colon cancer
     Dosage: REACTION AFTER SECOND CYCLE - START OF THERAPY 02/15/2023 - THERAPY EVERY 14 DAYS
     Dates: start: 20230301, end: 20230301
  3. FLUOROURACIL [Suspect]
     Active Substance: FLUOROURACIL
     Indication: Colon cancer
     Dosage: REACTION AFTER SECOND CYCLE - START OF THERAPY 02/15/2023 - THERAPY EVERY 14 DAYS
     Dates: start: 20230301, end: 20230301
  4. BEVACIZUMAB [Suspect]
     Active Substance: BEVACIZUMAB
     Indication: Colon cancer
     Dosage: START OF THERAPY 01/03/2023 - THERAPY EVERY 14 DAYS
     Dates: start: 20230301, end: 20230301
  5. LEVOLEUCOVORIN [Concomitant]
     Active Substance: LEVOLEUCOVORIN
     Indication: Product used for unknown indication
     Dosage: ACIDO LEVO FOLINICO

REACTIONS (1)
  - Neutropenia [Recovering/Resolving]

NARRATIVE: CASE EVENT DATE: 20230315
